FAERS Safety Report 4983104-4 (Version None)
Quarter: 2006Q2

REPORT INFORMATION
  Report Type: 
  Country: None (occurrence: None)
  Receive Date: 20060426
  Receipt Date: 20060418
  Transmission Date: 20061013
  Serious: Yes (Hospitalization)
  Sender: FDA-Public Use
  Company Number: US-JNJFOC-20060404720

PATIENT
  Sex: Male
  Weight: 72.58 kg

DRUGS (6)
  1. DURAGESIC-100 [Suspect]
     Route: 062
  2. SOMA [Concomitant]
     Route: 048
  3. VICODIN HP [Concomitant]
     Route: 048
  4. VICODIN HP [Concomitant]
     Indication: BREAKTHROUGH PAIN
     Route: 048
  5. VALIUM [Concomitant]
     Indication: ANXIETY
     Route: 048
  6. FLONASE [Concomitant]
     Dosage: 0.05%, 2 SPRAYS, 2 IN 1 DAY, INHALATION
     Route: 055

REACTIONS (1)
  - THYROID GLAND CANCER [None]
